FAERS Safety Report 8400856-1 (Version None)
Quarter: 2012Q2

REPORT INFORMATION
  Report Type: 
  Country: None (occurrence: None)
  Receive Date: 20120601
  Receipt Date: 20081008
  Transmission Date: 20120825
  Serious: Yes (Other)
  Sender: FDA-Public Use
  Company Number: JP-BRISTOL-MYERS SQUIBB COMPANY-16526584

PATIENT

DRUGS (1)
  1. ABILIFY [Suspect]
     Route: 065

REACTIONS (2)
  - MALAISE [None]
  - PERSECUTORY DELUSION [None]
